FAERS Safety Report 9371877 (Version 1)
Quarter: 2013Q2

REPORT INFORMATION
  Report Type: Spontaneous
  Country: US (occurrence: None)
  Receive Date: 20130625
  Receipt Date: 20130625
  Transmission Date: 20140414
  Serious: Yes (Other)
  Sender: FDA-Public Use
  Company Number: 2013AP006135

PATIENT
  Age: 75 Year
  Sex: 0

DRUGS (1)
  1. CALCITONIN [Suspect]

REACTIONS (2)
  - Fall [None]
  - Hip fracture [None]
